FAERS Safety Report 17084008 (Version 2)
Quarter: 2020Q1

REPORT INFORMATION
  Report Type: Report from Study
  Country: CA (occurrence: CA)
  Receive Date: 20191127
  Receipt Date: 20200313
  Transmission Date: 20200409
  Serious: Yes (Death, Other)
  Sender: FDA-Public Use
  Company Number: CA-TOLMAR, INC.-19CA001086

PATIENT
  Age: 76 Year
  Sex: Male
  Weight: 62.5 kg

DRUGS (2)
  1. ELIGARD [Suspect]
     Active Substance: LEUPROLIDE ACETATE
     Indication: PROSTATE CANCER
     Dosage: 30 MG, Q 4 MONTHS
     Route: 058
     Dates: start: 20191116
  2. ELIGARD [Suspect]
     Active Substance: LEUPROLIDE ACETATE
     Dosage: 30 MG, Q 4 MONTHS
     Route: 058
     Dates: start: 20180731

REACTIONS (11)
  - Insomnia [Unknown]
  - Dyspepsia [Unknown]
  - Constipation [Unknown]
  - Death [Fatal]
  - Balance disorder [Unknown]
  - Chills [Unknown]
  - Loss of personal independence in daily activities [Unknown]
  - Weight decreased [Unknown]
  - Gait disturbance [Unknown]
  - Prostatic specific antigen increased [Unknown]
  - Increased upper airway secretion [Unknown]

NARRATIVE: CASE EVENT DATE: 201909
